FAERS Safety Report 5459473-8 (Version None)
Quarter: 2007Q3

REPORT INFORMATION
  Report Type: 
  Country: None (occurrence: None)
  Receive Date: 20070919
  Receipt Date: 20070914
  Transmission Date: 20080115
  Serious: Yes (Hospitalization)
  Sender: FDA-Public Use
  Company Number: A0623137A

PATIENT
  Age: 31 Year
  Sex: Female
  Weight: 62 kg

DRUGS (3)
  1. NARAMIG [Suspect]
     Indication: MIGRAINE
     Dosage: 2.5MG AS REQUIRED
     Route: 048
     Dates: start: 20060608, end: 20060928
  2. PERLUTAN [Concomitant]
  3. ALGESTONE ACETOPHENIDE + ESTRADIOL [Concomitant]

REACTIONS (2)
  - ABORTION SPONTANEOUS [None]
  - MUSCLE SPASMS [None]
